FAERS Safety Report 7097726-0 (Version None)
Quarter: 2010Q4

REPORT INFORMATION
  Report Type: 
  Country: None (occurrence: None)
  Receive Date: 20101112
  Receipt Date: 20101102
  Transmission Date: 20110411
  Serious: No
  Sender: FDA-Public Use
  Company Number: 2007BI006882

PATIENT
  Sex: Female

DRUGS (3)
  1. AVONEX [Suspect]
     Indication: MULTIPLE SCLEROSIS
     Route: 030
     Dates: start: 20030516, end: 20030101
  2. AVONEX [Suspect]
     Route: 030
     Dates: start: 20060501
  3. AVONEX [Suspect]
     Route: 030
     Dates: end: 20070228

REACTIONS (9)
  - CONFUSIONAL STATE [None]
  - CONTUSION [None]
  - DRUG INEFFECTIVE [None]
  - EYELID PTOSIS [None]
  - MIGRAINE [None]
  - MULTIPLE SCLEROSIS [None]
  - MULTIPLE SCLEROSIS RELAPSE [None]
  - MUSCULOSKELETAL DISORDER [None]
  - ROAD TRAFFIC ACCIDENT [None]
